FAERS Safety Report 13742704 (Version 2)
Quarter: 2017Q3

REPORT INFORMATION
  Report Type: Spontaneous
  Country: FR (occurrence: FR)
  Receive Date: 20170711
  Receipt Date: 20170808
  Transmission Date: 20171127
  Serious: Yes (Hospitalization)
  Sender: FDA-Public Use
  Company Number: FR-TEVA-784630ROM

PATIENT
  Age: 15 Year
  Sex: Female

DRUGS (1)
  1. ANTADYS 100 MG [Suspect]
     Active Substance: FLURBIPROFEN
     Indication: ABDOMINAL PAIN
     Dosage: 600 MILLIGRAM DAILY;
     Route: 048
     Dates: start: 20170513, end: 20170513

REACTIONS (1)
  - Renal tubular necrosis [Recovered/Resolved]

NARRATIVE: CASE EVENT DATE: 20170515
